FAERS Safety Report 5880910-9 (Version None)
Quarter: 2008Q3

REPORT INFORMATION
  Report Type: 
  Country: None (occurrence: None)
  Receive Date: 20080912
  Receipt Date: 20080605
  Transmission Date: 20090109
  Serious: No
  Sender: FDA-Public Use
  Company Number: US-ABBOTT-08P-163-0457146-00

PATIENT
  Sex: Female
  Weight: 108.96 kg

DRUGS (7)
  1. HUMIRA [Suspect]
     Indication: OSTEOARTHRITIS
     Dosage: SHOT
     Dates: start: 20080502
  2. TRAZODONE HCL [Concomitant]
     Indication: DRUG USE FOR UNKNOWN INDICATION
     Route: 048
  3. CLONAZEPAM [Concomitant]
     Indication: DRUG USE FOR UNKNOWN INDICATION
     Dosage: 2 PILLS IN AM, 1PILL EVERY EVENING
     Route: 048
  4. CLONAZEPAM [Concomitant]
     Route: 048
  5. METHOTREXATE [Concomitant]
     Indication: PSORIASIS
     Route: 050
     Dates: start: 20080501
  6. METHOTREXATE [Concomitant]
     Route: 048
     Dates: start: 20030101, end: 20080401
  7. FOLIC ACID [Concomitant]
     Indication: DRUG USE FOR UNKNOWN INDICATION
     Dosage: NOT REPORTED

REACTIONS (1)
  - INAPPROPRIATE SCHEDULE OF DRUG ADMINISTRATION [None]
